FAERS Safety Report 6679196-7 (Version None)
Quarter: 2010Q2

REPORT INFORMATION
  Report Type: 
  Country: None (occurrence: None)
  Receive Date: 20100413
  Receipt Date: 20100407
  Transmission Date: 20101027
  Serious: Yes (Death, Life-Threatening, Other)
  Sender: FDA-Public Use
  Company Number: JP-JNJFOC-20100208627

PATIENT
  Sex: Male

DRUGS (7)
  1. RISPERDAL [Suspect]
     Indication: SCHIZOPHRENIA
     Route: 048
  2. LEVOMEPROMAZINE MALEATE [Suspect]
     Indication: SCHIZOPHRENIA
     Route: 048
  3. HORIZON [Concomitant]
     Indication: SCHIZOPHRENIA
     Route: 048
  4. AKINETON [Concomitant]
     Indication: SCHIZOPHRENIA
     Route: 048
  5. ROHYPNOL [Concomitant]
     Indication: SCHIZOPHRENIA
     Route: 048
  6. LENDORMIN [Concomitant]
     Indication: SCHIZOPHRENIA
     Route: 048
  7. VOGLIBOSE [Concomitant]
     Indication: DIABETIC NEPHROPATHY
     Route: 048

REACTIONS (7)
  - BLOOD CREATINE PHOSPHOKINASE INCREASED [None]
  - CARDIO-RESPIRATORY ARREST [None]
  - CONDUCTION DISORDER [None]
  - DIZZINESS [None]
  - HYPOTHERMIA [None]
  - MUSCULAR WEAKNESS [None]
  - VENTRICULAR FIBRILLATION [None]
